FAERS Safety Report 6722090-3 (Version None)
Quarter: 2010Q2

REPORT INFORMATION
  Report Type: 
  Country: None (occurrence: None)
  Receive Date: 20100512
  Receipt Date: 20100428
  Transmission Date: 20101027
  Serious: Yes (Hospitalization, Other)
  Sender: FDA-Public Use
  Company Number: ES-ELI_LILLY_AND_COMPANY-ES201004007927

PATIENT
  Sex: Female
  Weight: 65 kg

DRUGS (6)
  1. FORTEO [Suspect]
     Indication: OSTEOPOROSIS
     Dosage: 20 UG, DAILY (1/D)
     Route: 058
     Dates: start: 20100201
  2. CALCIUM SANDOZ [Concomitant]
     Indication: MUSCULOSKELETAL PAIN
     Dosage: 1 C, UNK
     Route: 048
  3. ZAMENE [Concomitant]
     Indication: MUSCULOSKELETAL PAIN
     Dosage: 1C 6 MG, DAILY (1/D)
     Route: 048
  4. ANAFRANIL [Concomitant]
     Dosage: 1C 10 MG, DAILY (1/D)
     Route: 048
  5. ENALAPRIL MALEATE [Concomitant]
     Indication: HYPERTENSION
     Dosage: 1/2C 20 MG, DAILY (1/D)
     Route: 048
  6. IDAPTAN [Concomitant]
     Indication: MACULAR DEGENERATION
     Dosage: 2C 20 MG, DAILY (1/D)
     Route: 048

REACTIONS (2)
  - FALL [None]
  - FEMUR FRACTURE [None]
